FAERS Safety Report 16409192 (Version 10)
Quarter: 2024Q1

REPORT INFORMATION
  Report Type: Spontaneous
  Country: DE (occurrence: DE)
  Receive Date: 20190610
  Receipt Date: 20240221
  Transmission Date: 20240410
  Serious: Yes (Other)
  Sender: FDA-Public Use
  Company Number: None

PATIENT
  Age: 60 Year
  Sex: Male

DRUGS (19)
  1. DOXORUBICIN [Suspect]
     Active Substance: DOXORUBICIN
     Indication: Mantle cell lymphoma stage IV
     Dosage: UNK, CYCLICAL (3 CYCLE, PART OF MAXI-CHOP REGIMEN)
     Route: 006
     Dates: start: 2016
  2. DOXORUBICIN [Suspect]
     Active Substance: DOXORUBICIN
     Indication: Mantle cell lymphoma
  3. MELPHALAN [Suspect]
     Active Substance: MELPHALAN
     Indication: Mantle cell lymphoma stage IV
     Dosage: UNK, CYCLICAL (RECEIVED THREE CYCLES; PART OF HIGH-DOSE BEAM REGIMEN)
     Route: 065
     Dates: start: 2016
  4. MELPHALAN [Suspect]
     Active Substance: MELPHALAN
     Indication: Mantle cell lymphoma
  5. BICNU [Suspect]
     Active Substance: CARMUSTINE
     Indication: Mantle cell lymphoma stage IV
     Dosage: UNK (RECEIVED THREE CYCLES; PART OF HIGH-DOSE BEAM REGIMEN)
     Route: 065
     Dates: start: 2016
  6. CARMUSTINE [Suspect]
     Active Substance: CARMUSTINE
     Indication: Mantle cell lymphoma stage IV
     Dosage: UNK, CYCLICAL (RECEIVED THREE CYCLES; PART OF HIGH-DOSE BEAM REGIMEN)
     Route: 065
     Dates: start: 2016
  7. CARMUSTINE [Suspect]
     Active Substance: CARMUSTINE
     Indication: Mantle cell lymphoma
  8. CYCLOPHOSPHAMIDE [Suspect]
     Active Substance: CYCLOPHOSPHAMIDE
     Indication: Mantle cell lymphoma stage IV
     Dosage: UNK, CYCLICAL (3 CYCLES, PART OF MAXI-CHOP REGIMEN)
     Route: 065
     Dates: start: 2016
  9. CYCLOPHOSPHAMIDE [Suspect]
     Active Substance: CYCLOPHOSPHAMIDE
     Indication: Mantle cell lymphoma
  10. CYTARABINE [Suspect]
     Active Substance: CYTARABINE
     Indication: Mantle cell lymphoma stage IV
     Dosage: UNK, CYCLICAL (UNK, 3 CYCLE HIGH-DOSE BEAM REGIMEN)
     Route: 065
     Dates: start: 2016
  11. CYTARABINE [Suspect]
     Active Substance: CYTARABINE
     Indication: Mantle cell lymphoma
  12. ETOPOSIDE [Suspect]
     Active Substance: ETOPOSIDE
     Indication: Mantle cell lymphoma stage IV
     Dosage: UNK, CYCLICAL (RECEIVED THREE CYCLES; PART OF HIGH-DOSE BEAM REGIMEN)
     Route: 065
     Dates: start: 2016
  13. PREDNISOLONE [Suspect]
     Active Substance: PREDNISOLONE
     Indication: Mantle cell lymphoma stage IV
     Dosage: UNK, CYCLICAL (3 CYCLE)(RECEIVED THREE CYCLES; PART OF MAXI-CHOP REGIMEN)
     Route: 065
     Dates: start: 2016
  14. PREDNISOLONE [Suspect]
     Active Substance: PREDNISOLONE
     Indication: Mantle cell lymphoma
  15. RITUXIMAB [Suspect]
     Active Substance: RITUXIMAB
     Indication: Mantle cell lymphoma stage IV
     Dosage: UNK, CYCLICAL
     Route: 042
     Dates: start: 2016
  16. RITUXIMAB [Suspect]
     Active Substance: RITUXIMAB
     Dosage: 1000 MILLIGRAM/KILOGRAM, 8 WEEK, MAINTENANCE THERAPY
     Route: 042
  17. VINCRISTINE [Suspect]
     Active Substance: VINCRISTINE
     Indication: Mantle cell lymphoma stage IV
     Dosage: UNK, CYCLICAL (RECEIVED THREE CYCLES; PART OF HIGH-DOSE BEAM REGIMEN)
     Route: 065
     Dates: start: 2016
  18. ADALIMUMAB [Concomitant]
     Active Substance: ADALIMUMAB\ISOPROPYL ALCOHOL
     Indication: Psoriatic arthropathy
     Dosage: UNK
     Route: 065
     Dates: start: 2012
  19. ADALIMUMAB [Concomitant]
     Active Substance: ADALIMUMAB\ISOPROPYL ALCOHOL
     Indication: Psoriasis

REACTIONS (15)
  - Thrombocytopenia [Unknown]
  - Psoriasis [Recovering/Resolving]
  - Febrile neutropenia [Recovered/Resolved]
  - Aspergillus infection [Recovered/Resolved]
  - Bronchopulmonary aspergillosis [Recovered/Resolved]
  - Pancytopenia [Recovered/Resolved]
  - Retinal haemorrhage [Recovered/Resolved]
  - Lymphopenia [Recovered/Resolved]
  - Psoriatic arthropathy [Recovered/Resolved]
  - Mantle cell lymphoma stage IV [Recovered/Resolved]
  - Hepatic infection fungal [Recovered/Resolved]
  - Herpes zoster [Recovered/Resolved]
  - Pyrexia [Recovered/Resolved]
  - Toxicity to various agents [Unknown]
  - Product use in unapproved indication [Unknown]

NARRATIVE: CASE EVENT DATE: 20160101
